FAERS Safety Report 13541670 (Version 1)
Quarter: 2017Q2

REPORT INFORMATION
  Report Type: Report from Study
  Country: CA (occurrence: CA)
  Receive Date: 20170512
  Receipt Date: 20170512
  Transmission Date: 20170830
  Serious: Yes (Life-Threatening, Other)
  Sender: FDA-Public Use
  Company Number: CA-JNJFOC-20170428240

PATIENT
  Age: 60 Year
  Sex: Female
  Weight: 80.74 kg

DRUGS (1)
  1. REMICADE [Suspect]
     Active Substance: INFLIXIMAB
     Indication: CROHN^S DISEASE
     Dosage: 5 MG/KG
     Route: 042
     Dates: start: 20150126

REACTIONS (2)
  - Lung neoplasm [Unknown]
  - Lung infection [Unknown]

NARRATIVE: CASE EVENT DATE: 20170422
